FAERS Safety Report 6187434-2 (Version None)
Quarter: 2009Q2

REPORT INFORMATION
  Report Type: 
  Country: None (occurrence: None)
  Receive Date: 20090512
  Receipt Date: 20090507
  Transmission Date: 20091009
  Serious: Yes (Other)
  Sender: FDA-Public Use
  Company Number: US-MERCK-0905USA00953

PATIENT
  Age: 44 Year
  Sex: Male

DRUGS (3)
  1. DARANIDE [Suspect]
     Route: 048
  2. POTASSIUM (UNSPECIFIED) [Concomitant]
     Route: 065
  3. ACETAZOLAMIDE [Suspect]
     Route: 065

REACTIONS (1)
  - PARALYSIS [None]
